FAERS Safety Report 4409810-8 (Version None)
Quarter: 2004Q3

REPORT INFORMATION
  Report Type: 
  Country: None (occurrence: None)
  Receive Date: 20040727
  Receipt Date: 20040727
  Transmission Date: 20050211
  Serious: Yes (Other)
  Sender: FDA-Public Use
  Company Number: None

PATIENT
  Sex: Female

DRUGS (1)
  1. ZOFRAN [Suspect]
     Indication: NAUSEA
     Dosage: 8MG  NOW  INTRAVENOUS
     Route: 042
     Dates: start: 20040713, end: 20040713

REACTIONS (2)
  - ERYTHEMA [None]
  - PRURITUS [None]
